FAERS Safety Report 19157113 (Version 3)
Quarter: 2021Q2

REPORT INFORMATION
  Report Type: Spontaneous
  Country: US (occurrence: US)
  Receive Date: 20210420
  Receipt Date: 20210514
  Transmission Date: 20210717
  Serious: Yes (Hospitalization, Other)
  Sender: FDA-Public Use
  Company Number: US-PFIZER INC-2021183888

PATIENT
  Age: 92 Year
  Sex: Female
  Weight: 60.32 kg

DRUGS (1)
  1. COLESTID [Suspect]
     Active Substance: COLESTIPOL HYDROCHLORIDE
     Indication: BLOOD CHOLESTEROL INCREASED
     Dosage: 1 PACK, 3X/DAY

REACTIONS (3)
  - Cough [Unknown]
  - Product solubility abnormal [Unknown]
  - Choking [Unknown]

NARRATIVE: CASE EVENT DATE: 202103
